FAERS Safety Report 24010191 (Version 1)
Quarter: 2024Q2

REPORT INFORMATION
  Report Type: Spontaneous
  Country: US (occurrence: None)
  Receive Date: 20240625
  Receipt Date: 20240625
  Transmission Date: 20240715
  Serious: No
  Sender: FDA-Public Use
  Company Number: 2024A144757

PATIENT
  Sex: Female

DRUGS (4)
  1. TEZSPIRE [Suspect]
     Active Substance: TEZEPELUMAB-EKKO
     Indication: Asthma
     Route: 058
  2. SYMBICORT [Suspect]
     Active Substance: BUDESONIDE\FORMOTEROL FUMARATE DIHYDRATE
     Dosage: UNK,UNK UNKNOWN
     Route: 055
  3. BUDESONIDE [Suspect]
     Active Substance: BUDESONIDE
     Dosage: UNK,UNK UNKNOWN
     Route: 055
  4. MONTELUKAST [Concomitant]
     Active Substance: MONTELUKAST SODIUM

REACTIONS (5)
  - Stress [Unknown]
  - Asthma [Unknown]
  - Product storage error [Unknown]
  - Drug ineffective [Unknown]
  - Product dose omission issue [Unknown]
